FAERS Safety Report 9952170 (Version 2)
Quarter: 2014Q2

REPORT INFORMATION
  Report Type: Not Available
  Country: FR (occurrence: FR)
  Receive Date: 20140304
  Receipt Date: 20140417
  Transmission Date: 20141212
  Serious: Yes (Hospitalization)
  Sender: FDA-Public Use
  Company Number: FR-NAPPMUNDI-GBR-2014-0017220

PATIENT
  Age: 64 Year
  Sex: Male

DRUGS (17)
  1. OXYCONTIN LP 20 MG, COMPRIME PELLICULE A LIBERATION PROLONGEE [Suspect]
     Indication: PAIN
     Dosage: 2 DF, BID
     Route: 048
     Dates: start: 201312, end: 20140111
  2. OXYNORM 5 MG, GELULE [Suspect]
     Indication: PAIN
     Dosage: 1 DF, Q4H
     Route: 048
     Dates: start: 201312, end: 20140111
  3. FORTUM                             /00559701/ [Suspect]
     Dosage: 2 G, QID
     Route: 042
     Dates: start: 201310
  4. CIFLOX                             /00697201/ [Suspect]
     Dosage: 1.5 G, UNK
     Route: 042
     Dates: start: 20131220
  5. ZOLPIDEM [Suspect]
     Dosage: 10 MG, DAILY
     Route: 048
     Dates: end: 20140110
  6. MIANSERINE [Concomitant]
     Dosage: UNK
     Dates: start: 20140111, end: 20140111
  7. COVERSYL                           /00790702/ [Concomitant]
  8. SELOKEN                            /00376902/ [Concomitant]
  9. LOXEN [Concomitant]
  10. TAHOR [Concomitant]
  11. GLUCOPHAGE [Concomitant]
  12. PLAVIX [Concomitant]
  13. XATRAL [Concomitant]
  14. TARDYFERON [Concomitant]
  15. PRAXILENE [Concomitant]
  16. MOVICOL                            /01625101/ [Concomitant]
  17. CALCIPARINE [Concomitant]

REACTIONS (3)
  - Renal failure acute [Recovering/Resolving]
  - Lactic acidosis [Recovered/Resolved]
  - Confusional state [Recovered/Resolved]
